FAERS Safety Report 18459951 (Version 1)
Quarter: 2020Q4

REPORT INFORMATION
  Report Type: Spontaneous
  Country: CN (occurrence: CN)
  Receive Date: 20201103
  Receipt Date: 20201103
  Transmission Date: 20210114
  Serious: Yes (Hospitalization, Other)
  Sender: FDA-Public Use
  Company Number: CN-ASTRAZENECA-2020SF42846

PATIENT
  Age: 16331 Day
  Sex: Male
  Weight: 78 kg

DRUGS (5)
  1. BRILINTA [Suspect]
     Active Substance: TICAGRELOR
     Indication: ANTIPLATELET THERAPY
     Route: 048
     Dates: start: 20200324, end: 20200410
  2. INDOBUFEN [Concomitant]
     Active Substance: INDOBUFEN
     Indication: ANTIPLATELET THERAPY
     Route: 048
     Dates: start: 20200324, end: 20200410
  3. RUIZHI [Concomitant]
     Indication: LIPIDS ABNORMAL
     Route: 048
     Dates: start: 20200324, end: 20200410
  4. RUIZHI [Concomitant]
     Indication: ARTERIOSCLEROSIS
     Route: 048
     Dates: start: 20200324, end: 20200410
  5. BETALOC [Concomitant]
     Active Substance: METOPROLOL
     Indication: HEART RATE ABNORMAL
     Route: 048
     Dates: start: 20200324, end: 20200410

REACTIONS (5)
  - Haematochezia [Unknown]
  - Gastrointestinal haemorrhage [Recovering/Resolving]
  - Red blood cell count decreased [Unknown]
  - Haemorrhage [Unknown]
  - Haemoglobin decreased [Unknown]

NARRATIVE: CASE EVENT DATE: 20200408
